FAERS Safety Report 9180065 (Version 1)
Quarter: 2012Q4

REPORT INFORMATION
  Report Type: Report from Study
  Country: AU (occurrence: AU)
  Receive Date: 20121029
  Receipt Date: 20121029
  Transmission Date: 20130627
  Serious: Yes (Life-Threatening)
  Sender: FDA-Public Use
  Company Number: AU-CELGENEUS-008-50794-12100914

PATIENT
  Age: 76 None
  Sex: Male
  Weight: 88.5 kg

DRUGS (10)
  1. VIDAZA [Suspect]
     Indication: MDS
     Dosage: 160 Milligram
     Route: 058
     Dates: start: 20120903, end: 20120910
  2. VIDAZA [Suspect]
     Dosage: 105 Milligram
     Route: 065
     Dates: start: 20121008, end: 20121012
  3. REVLIMID [Suspect]
     Indication: MDS
     Dosage: 10 Milligram
     Route: 048
     Dates: start: 20120903, end: 20120918
  4. REVLIMID [Suspect]
     Dosage: 5 Milligram
     Route: 048
     Dates: start: 20121008, end: 20121024
  5. NEXIUM [Concomitant]
     Indication: GASTROESOPHAGEAL REFLUX
     Dosage: 20 Milligram
     Route: 048
  6. MICARDIS [Concomitant]
     Indication: BLOOD PRESSURE
     Dosage: 40 Milligram
     Route: 048
  7. EFEXOR XR [Concomitant]
     Indication: DEPRESSION
     Dosage: 37.5 Milligram
     Route: 048
  8. PANADOL OSTEO [Concomitant]
     Indication: PAIN
     Route: 048
  9. ENDONE [Concomitant]
     Indication: PAIN
     Route: 048
  10. COLOXYL AND SENNA [Concomitant]
     Indication: CONSTIPATION
     Dosage: 1-2 dosage forms
     Route: 048

REACTIONS (2)
  - Platelet count decreased [Not Recovered/Not Resolved]
  - Platelet count decreased [Recovered/Resolved]
